FAERS Safety Report 5784129-1 (Version None)
Quarter: 2008Q2

REPORT INFORMATION
  Report Type: 
  Country: None (occurrence: None)
  Receive Date: 20080605
  Receipt Date: 20080401
  Transmission Date: 20081010
  Serious: No
  Sender: FDA-Public Use
  Company Number: A0718572A

PATIENT
  Age: 28 Year
  Sex: Female
  Weight: 88 kg

DRUGS (2)
  1. ALLI [Suspect]
     Dates: start: 20080317
  2. ORAL CONTRACEPTIVE [Concomitant]
     Route: 048

REACTIONS (1)
  - MENSTRUAL DISORDER [None]
